FAERS Safety Report 14933834 (Version 2)
Quarter: 2018Q2

REPORT INFORMATION
  Report Type: Report from Study
  Country: ES (occurrence: ES)
  Receive Date: 20180524
  Receipt Date: 20180531
  Transmission Date: 20180711
  Serious: Yes (Other)
  Sender: FDA-Public Use
  Company Number: ES-MYLANLABS-2018M1034091

PATIENT
  Age: 75 Year
  Sex: Male

DRUGS (2)
  1. TACROLIMUS. [Suspect]
     Active Substance: TACROLIMUS
     Indication: PROPHYLAXIS AGAINST TRANSPLANT REJECTION
     Dosage: 15 MG, UNK
     Route: 048
  2. TACROLIMUS. [Suspect]
     Active Substance: TACROLIMUS
     Dosage: 15 MG, UNK
     Route: 048

REACTIONS (4)
  - Abdominal distension [Unknown]
  - Fluid overload [Unknown]
  - Vomiting [Unknown]
  - Ileus paralytic [Recovered/Resolved]

NARRATIVE: CASE EVENT DATE: 20170201
